FAERS Safety Report 8395625-5 (Version None)
Quarter: 2012Q2

REPORT INFORMATION
  Report Type: 
  Country: None (occurrence: None)
  Receive Date: 20120530
  Receipt Date: 20111208
  Transmission Date: 20120825
  Serious: No
  Sender: FDA-Public Use
  Company Number: US-GLAXOSMITHKLINE-A0957344A

PATIENT
  Age: 4 Month
  Sex: Male

DRUGS (2)
  1. NO CONCURRENT MEDICATION [Concomitant]
  2. VENTOLIN [Suspect]
     Indication: ASTHMA
     Dosage: 2PUFF SIX TIMES PER DAY
     Route: 055
     Dates: start: 20111201

REACTIONS (1)
  - RASH [None]
